FAERS Safety Report 7657841-7 (Version None)
Quarter: 2011Q3

REPORT INFORMATION
  Report Type: 
  Country: None (occurrence: None)
  Receive Date: 20110805
  Receipt Date: 20110726
  Transmission Date: 20111222
  Serious: No
  Sender: FDA-Public Use
  Company Number: US-BIOGENIDEC-2011BI019213

PATIENT
  Sex: Female

DRUGS (1)
  1. TYSABRI [Suspect]
     Indication: MULTIPLE SCLEROSIS
     Route: 042
     Dates: start: 20090702, end: 20110421

REACTIONS (7)
  - BRONCHITIS [None]
  - WEIGHT DECREASED [None]
  - RED BLOOD CELL COUNT INCREASED [None]
  - RIB FRACTURE [None]
  - PYREXIA [None]
  - APHAGIA [None]
  - DEPRESSION [None]
